FAERS Safety Report 5261918-3 (Version None)
Quarter: 2007Q1

REPORT INFORMATION
  Report Type: 
  Country: None (occurrence: None)
  Receive Date: 20070308
  Receipt Date: 20070302
  Transmission Date: 20070707
  Serious: Yes (Death, Life-Threatening, Hospitalization)
  Sender: FDA-Public Use
  Company Number: CLOF-10464

PATIENT
  Age: 57 Year
  Sex: Male

DRUGS (2)
  1. CLOFARABINE [Suspect]
     Indication: ACUTE MYELOID LEUKAEMIA
     Dosage: 48 MG QD X 5 IV
     Route: 042
     Dates: start: 20070201, end: 20070205
  2. IDARUBICIN HCL [Suspect]
     Indication: ACUTE MYELOID LEUKAEMIA
     Dosage: 21 MG QD X 3 IV
     Route: 042
     Dates: start: 20070201, end: 20070203

REACTIONS (4)
  - CELLULITIS [None]
  - FEBRILE NEUTROPENIA [None]
  - PNEUMONIA FUNGAL [None]
  - RESPIRATORY DISTRESS [None]
